FAERS Safety Report 7509070-5 (Version None)
Quarter: 2011Q2

REPORT INFORMATION
  Report Type: 
  Country: None (occurrence: None)
  Receive Date: 20110519
  Receipt Date: 20110512
  Transmission Date: 20111010
  Serious: Yes (Other)
  Sender: FDA-Public Use
  Company Number: 2010SP0410883

PATIENT
  Age: 34 Year
  Sex: Female
  Weight: 60 kg

DRUGS (7)
  1. CALCIUM CARBONATE [Concomitant]
  2. METHOTREXATE SODIUM [Suspect]
     Indication: RHEUMATOID ARTHRITIS
     Dosage: 20 MG, QW, PO
     Route: 048
     Dates: start: 20071023, end: 20100714
  3. FOLIC ACID [Concomitant]
  4. ACETAMINOPHEN [Concomitant]
  5. DESOGESTREL AND ETHINYL ESTRADIOL [Suspect]
     Indication: CONTRACEPTION
     Dosage: PO
     Route: 048
     Dates: start: 20050101, end: 20100714
  6. METHYLPREDNISOLONE [Suspect]
     Indication: RHEUMATOID ARTHRITIS
     Dosage: 8 MG, QD, PO
     Route: 048
     Dates: start: 20071023
  7. COLECALCIFEROL [Concomitant]

REACTIONS (4)
  - PREGNANCY ON ORAL CONTRACEPTIVE [None]
  - DRUG INEFFECTIVE [None]
  - ABORTION SPONTANEOUS [None]
  - DRUG EXPOSURE DURING PREGNANCY [None]
